FAERS Safety Report 15628235 (Version 1)
Quarter: 2018Q4

REPORT INFORMATION
  Report Type: Report from Study
  Country: US (occurrence: US)
  Receive Date: 20181116
  Receipt Date: 20181116
  Transmission Date: 20190205
  Serious: Yes (Other)
  Sender: FDA-Public Use
  Company Number: US-JAZZ-2018-US-011238

PATIENT
  Sex: Female

DRUGS (39)
  1. GABAPENTIN. [Concomitant]
     Active Substance: GABAPENTIN
  2. HYDROCODONE BITARTRATE AND ACETAMINOPHEN [Concomitant]
     Active Substance: ACETAMINOPHEN\HYDROCODONE BITARTRATE
  3. MELATONIN [Concomitant]
     Active Substance: MELATONIN
  4. NAPROXEN. [Concomitant]
     Active Substance: NAPROXEN
  5. NEXIUM 24HR [Concomitant]
     Active Substance: ESOMEPRAZOLE MAGNESIUM
  6. CORTISONE ACETATE. [Concomitant]
     Active Substance: CORTISONE ACETATE
  7. GUAIFENESIN. [Concomitant]
     Active Substance: GUAIFENESIN
  8. LICHEN [Concomitant]
  9. MODAFINIL. [Concomitant]
     Active Substance: MODAFINIL
  10. VITAMIN B-6 [Concomitant]
     Active Substance: PYRIDOXINE
  11. VITAMIN C ACID [Concomitant]
     Active Substance: ASCORBIC ACID
  12. XYREM [Suspect]
     Active Substance: SODIUM OXYBATE
     Dosage: 3 G, BID
     Route: 048
     Dates: start: 201712, end: 2018
  13. RANITIDINE. [Concomitant]
     Active Substance: RANITIDINE
  14. ADVAIR HFA [Concomitant]
     Active Substance: FLUTICASONE PROPIONATE\SALMETEROL XINAFOATE
  15. ALBUTEROL SULFATE. [Concomitant]
     Active Substance: ALBUTEROL SULFATE
  16. DULOXETINE HCL [Concomitant]
     Active Substance: DULOXETINE HYDROCHLORIDE
  17. MALIC ACID [Concomitant]
     Active Substance: MALIC ACID
  18. ZOSTAVAX [Concomitant]
     Active Substance: VARICELLA-ZOSTER VIRUS STRAIN OKA/MERCK LIVE ANTIGEN
  19. CHONDROITIN SULFATE [Concomitant]
     Active Substance: CHONDROITIN SULFATE (BOVINE)
  20. HYDROCORTISONE. [Concomitant]
     Active Substance: HYDROCORTISONE
  21. PROAIR HFA [Concomitant]
     Active Substance: ALBUTEROL SULFATE
  22. XYREM [Suspect]
     Active Substance: SODIUM OXYBATE
     Indication: NARCOLEPSY
     Dosage: 2.25 G, BID
     Route: 048
     Dates: start: 201711, end: 201712
  23. CETIRIZINE HCL [Concomitant]
     Active Substance: CETIRIZINE HYDROCHLORIDE
  24. LIOTHYRONINE SOD. [Concomitant]
  25. LORAZEPAM. [Concomitant]
     Active Substance: LORAZEPAM
  26. MANGANESE [Concomitant]
     Active Substance: MANGANESE\MANGANESE CHLORIDE
  27. TIZANIDINE HCL [Concomitant]
     Active Substance: TIZANIDINE HYDROCHLORIDE
  28. BUPROPION HCL [Concomitant]
     Active Substance: BUPROPION HYDROCHLORIDE
  29. BYSTOLIC [Concomitant]
     Active Substance: NEBIVOLOL HYDROCHLORIDE
  30. COENZYME Q10 [Concomitant]
     Active Substance: UBIDECARENONE
  31. DHEA [Concomitant]
     Active Substance: PRASTERONE
  32. ESTROVEN [Concomitant]
     Active Substance: DIETARY SUPPLEMENT
  33. FUROSEMIDE. [Concomitant]
     Active Substance: FUROSEMIDE
  34. GLUCOSAMINE CHONDROINATO [Concomitant]
  35. LEVOTHYROXINE. [Concomitant]
     Active Substance: LEVOTHYROXINE
  36. METHYLPHENIDATE. [Concomitant]
     Active Substance: METHYLPHENIDATE
  37. LYSINE [Concomitant]
     Active Substance: LYSINE
  38. VITAMIN D3 [Concomitant]
     Active Substance: CHOLECALCIFEROL
  39. DHA [Concomitant]
     Active Substance: DIETARY SUPPLEMENT

REACTIONS (3)
  - Fibromyalgia [Recovering/Resolving]
  - Pain [Not Recovered/Not Resolved]
  - Sleep apnoea syndrome [Not Recovered/Not Resolved]
